FAERS Safety Report 8329722-7 (Version None)
Quarter: 2012Q2

REPORT INFORMATION
  Report Type: 
  Country: None (occurrence: None)
  Receive Date: 20120502
  Receipt Date: 20120428
  Transmission Date: 20120825
  Serious: Yes (Hospitalization)
  Sender: FDA-Public Use
  Company Number: JP-GLAXOSMITHKLINE-B0798860A

PATIENT
  Age: 29 Year
  Sex: Male

DRUGS (1)
  1. RELENZA [Suspect]
     Indication: INFLUENZA
     Dosage: 5MG PER DAY
     Route: 055
     Dates: start: 20120419

REACTIONS (8)
  - DECREASED APPETITE [None]
  - FEELING ABNORMAL [None]
  - DYSGEUSIA [None]
  - DIARRHOEA [None]
  - RASH [None]
  - DEPRESSED LEVEL OF CONSCIOUSNESS [None]
  - SKIN DISCOLOURATION [None]
  - VOMITING [None]
